FAERS Safety Report 25120542 (Version 1)
Quarter: 2025Q1

REPORT INFORMATION
  Report Type: Report from Study
  Country: US (occurrence: US)
  Receive Date: 20250325
  Receipt Date: 20250325
  Transmission Date: 20250409
  Serious: Yes (Other)
  Sender: BAYER HEALTHCARE PHARMACEUTICALS INC.
  Company Number: US-BAYER-2025A037124

PATIENT
  Age: 76 Year
  Sex: Male

DRUGS (1)
  1. NUBEQA [Suspect]
     Active Substance: DAROLUTAMIDE
     Indication: Prostate cancer
     Dosage: 600 MG, BID
     Route: 048

REACTIONS (8)
  - Cerebrovascular accident [Unknown]
  - Oral pain [Unknown]
  - Feeling of body temperature change [Unknown]
  - Speech disorder [Unknown]
  - Product dose omission issue [Unknown]
  - Mouth swelling [Unknown]
  - Lip pain [Unknown]
  - Lip swelling [Unknown]
